FAERS Safety Report 9316831 (Version 1)
Quarter: 2013Q2

REPORT INFORMATION
  Report Type: Spontaneous
  Country: US (occurrence: US)
  Receive Date: 20130530
  Receipt Date: 20130530
  Transmission Date: 20140414
  Serious: No
  Sender: FDA-Public Use
  Company Number: US-NOVEN-12US004445

PATIENT
  Age: 11 Year
  Sex: Male
  Weight: 36.28 kg

DRUGS (6)
  1. DAYTRANA [Suspect]
     Indication: ATTENTION DEFICIT/HYPERACTIVITY DISORDER
     Dosage: 2 30 MG PATCHES QD
     Route: 062
     Dates: start: 20120302
  2. DAYTRANA [Suspect]
     Dosage: 1 1/2 30 MG
  3. CLONIDINE [Concomitant]
     Indication: ATTENTION DEFICIT/HYPERACTIVITY DISORDER
     Dosage: 0.1 MG, TID
     Route: 048
  4. CARBAMAZEPIN [Concomitant]
     Indication: BIPOLAR DISORDER
     Dosage: 100 MG, BID
     Route: 048
  5. TRAZODONE [Concomitant]
     Indication: BIPOLAR DISORDER
     Dosage: 50 MG, BEDTIME
     Route: 048
  6. HUMULIN REGULAR [Concomitant]
     Indication: TYPE 1 DIABETES MELLITUS
     Dosage: SLIDING SCALE
     Route: 058

REACTIONS (2)
  - Wrong technique in drug usage process [Not Recovered/Not Resolved]
  - No adverse event [None]
